FAERS Safety Report 6735255-1 (Version None)
Quarter: 2010Q2

REPORT INFORMATION
  Report Type: 
  Country: None (occurrence: None)
  Receive Date: 20100514
  Receipt Date: 20090722
  Transmission Date: 20101027
  Serious: Yes (Hospitalization)
  Sender: FDA-Public Use
  Company Number: WAES 0907USA05176

PATIENT
  Age: 54 Year
  Sex: Male

DRUGS (1)
  1. HYDRODIURIL [Suspect]
     Dosage: PO
     Dates: end: 19980101

REACTIONS (1)
  - HYPOKALAEMIA [None]
